FAERS Safety Report 6892360 (Version 2)
Quarter: 2013Q1

REPORT INFORMATION
  Report Type: Spontaneous
  Country: FR (occurrence: FR)
  Receive Date: 20090126
  Receipt Date: 20130325
  Transmission Date: 20140127
  Serious: Yes (Hospitalization)
  Sender: FDA-Public Use
  Company Number: FR-PFIZER INC-2009156678

PATIENT
  Age: 72 Year
  Sex: Male

DRUGS (21)
  1. REVATIO [Suspect]
     Dosage: UNK
     Route: 048
     Dates: start: 20081008, end: 20081014
  2. INSPRA [Suspect]
     Dosage: UNK
     Route: 048
     Dates: start: 20080904, end: 20081027
  3. CRESTOR [Suspect]
     Dosage: UNK
     Route: 048
     Dates: start: 200809, end: 20081113
  4. IMOVANE [Suspect]
     Dosage: UNK
     Route: 048
     Dates: start: 20081010, end: 20081113
  5. PREVISCAN [Suspect]
     Dosage: UNK
     Route: 048
     Dates: start: 20081014, end: 20081113
  6. COVERSYL [Suspect]
     Dosage: 4 MG, UNK
     Route: 048
     Dates: start: 20081019, end: 20081021
  7. COVERSYL [Suspect]
     Dosage: 2 MG, UNK
     Route: 048
     Dates: start: 20081104, end: 20081113
  8. LASILIX [Suspect]
     Dosage: UNK
     Route: 048
     Dates: start: 20080904, end: 20081027
  9. CORDARONE [Suspect]
     Dosage: UNK
     Route: 048
     Dates: start: 20080904, end: 20081008
  10. ASPEGIC [Suspect]
     Dosage: UNK
     Route: 048
     Dates: start: 20081008, end: 20081014
  11. INEXIUM [Suspect]
     Dosage: UNK
     Route: 048
     Dates: start: 20081008, end: 20081014
  12. AUGMENTIN [Suspect]
     Dosage: UNK
     Route: 048
     Dates: start: 20081009, end: 20081012
  13. DIFFU K [Suspect]
     Dosage: UNK
     Route: 048
     Dates: start: 20081009, end: 20081027
  14. OFLOCET [Suspect]
     Dosage: UNK
     Route: 048
     Dates: start: 20081015, end: 20081015
  15. BACTRIM FORTE [Suspect]
     Route: 048
     Dates: start: 20081019, end: 20081026
  16. DI-ANTALVIC [Suspect]
     Dosage: UNK
     Route: 048
     Dates: start: 20081012, end: 20081014
  17. EFFERALGAN [Suspect]
     Dosage: UNK
     Route: 048
     Dates: start: 20081009, end: 20081012
  18. CALCIPARINE [Suspect]
     Dosage: UNK
     Route: 058
     Dates: start: 20080901, end: 20080910
  19. TAVANIC [Suspect]
     Dosage: UNK
     Route: 048
     Dates: start: 20080823, end: 20080828
  20. CARDENSIEL [Concomitant]
     Dosage: UNK
  21. TRIATEC [Concomitant]
     Dosage: UNK

REACTIONS (3)
  - Jaundice [Not Recovered/Not Resolved]
  - Hepatocellular injury [Not Recovered/Not Resolved]
  - Cholestasis [Not Recovered/Not Resolved]
